FAERS Safety Report 6286398-0 (Version None)
Quarter: 2009Q3

REPORT INFORMATION
  Report Type: 
  Country: None (occurrence: None)
  Receive Date: 20090728
  Receipt Date: 20090721
  Transmission Date: 20100115
  Serious: Yes (Death)
  Sender: FDA-Public Use
  Company Number: US-GILEAD-2009-0023241

PATIENT
  Sex: Female
  Weight: 77.18 kg

DRUGS (12)
  1. LETAIRIS [Suspect]
     Indication: PULMONARY ARTERIAL HYPERTENSION
     Route: 048
     Dates: start: 20090427, end: 20090601
  2. REVATIO [Concomitant]
  3. LASIX [Concomitant]
  4. SOTALOL [Concomitant]
  5. ATIVAN [Concomitant]
  6. XALATAN 0.0005% EYE DROPS [Concomitant]
  7. AMBIEN CR [Concomitant]
  8. LIPITOR [Concomitant]
  9. LYRICA [Concomitant]
  10. LOVAZA [Concomitant]
  11. CALCIUM [Concomitant]
  12. OXYGEN [Concomitant]

REACTIONS (1)
  - CHRONIC RESPIRATORY FAILURE [None]
